FAERS Safety Report 6822567-6 (Version None)
Quarter: 2010Q3

REPORT INFORMATION
  Report Type: 
  Country: None (occurrence: None)
  Receive Date: 20100708
  Receipt Date: 20070726
  Transmission Date: 20110219
  Serious: Yes (Other)
  Sender: FDA-Public Use
  Company Number: US-PFIZER INC-2007062202

PATIENT
  Sex: Male

DRUGS (1)
  1. ZOLOFT [Suspect]

REACTIONS (4)
  - BLOOD CHOLESTEROL INCREASED [None]
  - DEPRESSION [None]
  - HEPATIC FAILURE [None]
  - HYPERTENSION [None]
